FAERS Safety Report 24995029 (Version 4)
Quarter: 2025Q2

REPORT INFORMATION
  Report Type: Spontaneous
  Country: TW (occurrence: TW)
  Receive Date: 20250221
  Receipt Date: 20250403
  Transmission Date: 20250717
  Serious: Yes (Other)
  Sender: MERCK SHARP AND DOHME
  Company Number: TW-009507513-2256931

PATIENT
  Age: 59 Year
  Sex: Female

DRUGS (3)
  1. PEMBROLIZUMAB [Suspect]
     Active Substance: PEMBROLIZUMAB
     Indication: Endometrial adenocarcinoma
     Dosage: 200 MG, EVERY 3 WEEKS (Q3W)
     Dates: start: 202410
  2. PACLITAXEL [Suspect]
     Active Substance: PACLITAXEL
     Indication: Endometrial adenocarcinoma
     Dates: start: 202410
  3. CARBOPLATIN [Suspect]
     Active Substance: CARBOPLATIN
     Indication: Endometrial adenocarcinoma
     Dates: start: 202410

REACTIONS (5)
  - Appendicectomy [Unknown]
  - Hysterosalpingo-oophorectomy [Unknown]
  - Ovarian neoplasm [Unknown]
  - Omentectomy [Unknown]
  - Lymphadenectomy [Unknown]

NARRATIVE: CASE EVENT DATE: 20241201
